FAERS Safety Report 21026801 (Version 1)
Quarter: 2022Q2

REPORT INFORMATION
  Report Type: Spontaneous
  Country: FR (occurrence: FR)
  Receive Date: 20220630
  Receipt Date: 20220630
  Transmission Date: 20220721
  Serious: Yes (Death, Life-Threatening, Hospitalization)
  Sender: FDA-Public Use
  Company Number: FR-drreddys-LIT/FRA/22/0151743

PATIENT
  Age: 55 Year
  Sex: Male

DRUGS (3)
  1. PEMETREXED [Suspect]
     Active Substance: PEMETREXED
     Indication: Non-small cell lung cancer
     Dosage: FOUR CYCLES
  2. PEMETREXED [Suspect]
     Active Substance: PEMETREXED
     Dosage: MAINTENANCE
  3. CARBOPLATIN [Suspect]
     Active Substance: CARBOPLATIN
     Indication: Non-small cell lung cancer
     Dosage: FOUR CYCLES

REACTIONS (3)
  - Death [Fatal]
  - Drug ineffective [Unknown]
  - Non-small cell lung cancer [Unknown]
